FAERS Safety Report 7281575 (Version 3)
Quarter: 2013Q1

REPORT INFORMATION
  Report Type: Spontaneous
  Country: US (occurrence: US)
  Receive Date: 20100217
  Receipt Date: 20130108
  Transmission Date: 20140127
  Serious: Yes (Hospitalization, Other)
  Sender: FDA-Public Use
  Company Number: US-ELI_LILLY_AND_COMPANY-US201002003456

PATIENT
  Sex: Female
  Weight: 86.62 kg

DRUGS (4)
  1. BYETTA [Suspect]
     Dosage: UNK, UNKNOWN
     Route: 065
     Dates: start: 20090116, end: 20090127
  2. JANUMET [Concomitant]
     Indication: DIABETES MELLITUS
  3. ZETIA /USA/ [Concomitant]
     Indication: HYPERLIPIDAEMIA
  4. SYNTHROID [Concomitant]

REACTIONS (1)
  - Alcoholic pancreatitis [Recovering/Resolving]
